FAERS Safety Report 20962961 (Version 2)
Quarter: 2022Q3

REPORT INFORMATION
  Report Type: Spontaneous
  Country: US (occurrence: US)
  Receive Date: 20220615
  Receipt Date: 20220726
  Transmission Date: 20221027
  Serious: No
  Sender: FDA-Public Use
  Company Number: US-BAYER-2022A083169

PATIENT
  Age: 89 Year
  Sex: Female

DRUGS (1)
  1. MIRALAX [Suspect]
     Active Substance: POLYETHYLENE GLYCOL 3350
     Dosage: 1 WHITE FULL CAP
     Route: 048
     Dates: start: 20220612, end: 20220613

REACTIONS (3)
  - Illness [Unknown]
  - Product container seal issue [None]
  - Product physical consistency issue [None]

NARRATIVE: CASE EVENT DATE: 20220612
